FAERS Safety Report 8245971-0 (Version None)
Quarter: 2012Q1

REPORT INFORMATION
  Report Type: 
  Country: None (occurrence: None)
  Receive Date: 20120330
  Receipt Date: 20120328
  Transmission Date: 20120608
  Serious: No
  Sender: FDA-Public Use
  Company Number: US-PFIZER INC-2012079869

PATIENT
  Sex: Male
  Weight: 118.82 kg

DRUGS (5)
  1. VIAGRA [Suspect]
     Dosage: 200 MG, AS NEEDED
     Route: 048
  2. BENICAR [Concomitant]
     Indication: HYPERTENSION
  3. VIAGRA [Suspect]
     Indication: ERECTILE DYSFUNCTION
     Dosage: 50 MG, AS NEEDED
     Route: 048
  4. VIAGRA [Suspect]
     Dosage: 100 MG, AS NEEDED
     Route: 048
  5. AVAPRO [Concomitant]
     Indication: HYPERTENSION
     Dosage: UNK

REACTIONS (2)
  - DRUG INEFFECTIVE [None]
  - INCORRECT DOSE ADMINISTERED [None]
